FAERS Safety Report 10235315 (Version 1)
Quarter: 2014Q2

REPORT INFORMATION
  Report Type: Spontaneous
  Country: US (occurrence: US)
  Receive Date: 20140613
  Receipt Date: 20140613
  Transmission Date: 20141212
  Serious: No
  Sender: FDA-Public Use
  Company Number: US-PFIZER INC-2014159910

PATIENT
  Sex: Female

DRUGS (1)
  1. LYRICA [Suspect]
     Indication: PAIN
     Dosage: 300 MG, DAILY (TAKING 1 CAPSULE DAILY)

REACTIONS (3)
  - Feeling abnormal [Unknown]
  - Malaise [Unknown]
  - Pain [Unknown]
